FAERS Safety Report 19349484 (Version 1)
Quarter: 2021Q2

REPORT INFORMATION
  Report Type: Spontaneous
  Country: US (occurrence: US)
  Receive Date: 20210531
  Receipt Date: 20210531
  Transmission Date: 20210717
  Serious: Yes (Life-Threatening, Other)
  Sender: FDA-Public Use
  Company Number: None

PATIENT
  Age: 61 Year
  Sex: Male
  Weight: 99 kg

DRUGS (10)
  1. VOLTAREN ARTHRITIS PAIN [Suspect]
     Active Substance: DICLOFENAC SODIUM
     Indication: COSTOCHONDRITIS
     Dosage: ?          QUANTITY:1 TUBE;?
     Route: 061
     Dates: start: 20210519, end: 20210521
  2. MAG GLYCINATE 100MG [Concomitant]
  3. VIT E HIGH GAMA COMPLEX 432MG [Concomitant]
  4. ENERGY + METAB [Concomitant]
  5. BAYER LOW DOSE 81MG [Concomitant]
  6. ECHINACEA + GOLDENSEAL 900G [Concomitant]
  7. GNC MEGA MEN MULTI VIT [Concomitant]
  8. COENZYME Q10 [Concomitant]
     Active Substance: DIETARY SUPPLEMENT\UBIDECARENONE
  9. D3 125 MCG [Concomitant]
  10. ZINC 50MG [Concomitant]

REACTIONS (3)
  - Myocardial infarction [None]
  - Dyspnoea [None]
  - Palpitations [None]

NARRATIVE: CASE EVENT DATE: 20210520
